FAERS Safety Report 5589922-6 (Version None)
Quarter: 2008Q1

REPORT INFORMATION
  Report Type: 
  Country: None (occurrence: None)
  Receive Date: 20080114
  Receipt Date: 20080104
  Transmission Date: 20080703
  Serious: Yes (Death)
  Sender: FDA-Public Use
  Company Number: US-JNJFOC-20080102019

PATIENT
  Age: 33 Year
  Sex: Male

DRUGS (3)
  1. ASPIRIN [Suspect]
     Indication: SUICIDE ATTEMPT
     Route: 048
  2. QUETIAPINE [Suspect]
     Indication: SUICIDE ATTEMPT
     Route: 048
  3. CLONAZEPAM [Suspect]
     Indication: SUICIDE ATTEMPT
     Route: 048

REACTIONS (1)
  - DRUG TOXICITY [None]
